FAERS Safety Report 26210923 (Version 1)
Quarter: 2025Q4

REPORT INFORMATION
  Report Type: Spontaneous
  Country: EU (occurrence: EU)
  Receive Date: 20251230
  Receipt Date: 20251230
  Transmission Date: 20260118
  Serious: Yes (Other)
  Sender: AUROBINDO
  Company Number: EU-EMB-M202406288-1

PATIENT
  Sex: Female

DRUGS (11)
  1. PANTOPRAZOLE SODIUM [Suspect]
     Active Substance: PANTOPRAZOLE SODIUM
     Indication: Morning sickness
     Dosage: 20 MILLIGRAM, AS DIRECTED
  2. ACETAMINOPHEN [Suspect]
     Active Substance: ACETAMINOPHEN
     Indication: Migraine
     Dosage: UNK (3000 MG/D BECAUSE OF AN ACUTE MIGRAINE ATTACK AT GW 5, OTHERWISE AS NEEDED)
  3. ACETAMINOPHEN [Suspect]
     Active Substance: ACETAMINOPHEN
     Dosage: UNK
  4. GAVISCON [Suspect]
     Active Substance: ALUMINUM HYDROXIDE\MAGNESIUM CARBONATE
     Indication: Morning sickness
     Dosage: UNK UNK, AS NECESSARY
     Dates: start: 202405, end: 202502
  5. ortoton [Concomitant]
     Indication: Migraine
     Dosage: 500 MILLIGRAM, ONCE A DAY
     Dates: start: 202406, end: 202406
  6. ZOLMITRIPTAN [Concomitant]
     Active Substance: ZOLMITRIPTAN
     Indication: Migraine
     Dosage: 5 MILLIGRAM, ONCE A DAY
     Dates: start: 202406
  7. DICLOFENAC [Concomitant]
     Active Substance: DICLOFENAC
     Indication: Migraine
     Dosage: 150 MILLIGRAM, ONCE A DAY
     Dates: start: 202406, end: 202406
  8. novalgin [Concomitant]
     Indication: Migraine
     Dosage: 1000 MILLIGRAM, ONCE A DAY
     Dates: start: 202406
  9. PREDNISOLONE [Concomitant]
     Active Substance: PREDNISOLONE
     Indication: Migraine
     Dosage: 200 MILLIGRAM, ONCE A DAY
     Dates: start: 202406
  10. IBUPROFEN [Concomitant]
     Active Substance: IBUPROFEN
     Indication: Migraine
     Dosage: 600 MILLIGRAM (2400 MG/D BECAUSE OF AN ACUTE MIGRAINE ATTACK AT GW 5, OTHERWISE 600MG AS NEEDED)
  11. IBUPROFEN [Concomitant]
     Active Substance: IBUPROFEN
     Dosage: UNK

REACTIONS (2)
  - Small for dates baby [Not Recovered/Not Resolved]
  - Foetal exposure during pregnancy [Unknown]

NARRATIVE: CASE EVENT DATE: 20250201
